FAERS Safety Report 19414602 (Version 1)
Quarter: 2021Q2

REPORT INFORMATION
  Report Type: Spontaneous
  Country: CA (occurrence: CA)
  Receive Date: 20210615
  Receipt Date: 20210615
  Transmission Date: 20210717
  Serious: Yes (Life-Threatening, Other)
  Sender: FDA-Public Use
  Company Number: CA-AUROBINDO-AUR-APL-2021-024335

PATIENT
  Age: 17 Year
  Sex: Female
  Weight: 68 kg

DRUGS (7)
  1. METOCLOPRAMIDE. [Concomitant]
     Active Substance: METOCLOPRAMIDE
     Indication: PRODUCT USED FOR UNKNOWN INDICATION
     Dosage: UNK
     Route: 065
  2. CITALOPRAM [Suspect]
     Active Substance: CITALOPRAM HYDROBROMIDE
     Indication: ANXIETY
  3. ACETAMINOPHEN. [Concomitant]
     Active Substance: ACETAMINOPHEN
     Indication: PRODUCT USED FOR UNKNOWN INDICATION
     Dosage: UNK
     Route: 065
  4. ONDANSETRON [Concomitant]
     Active Substance: ONDANSETRON
     Indication: PRODUCT USED FOR UNKNOWN INDICATION
     Dosage: UNK
     Route: 065
  5. IBUPROFEN. [Concomitant]
     Active Substance: IBUPROFEN
     Indication: PRODUCT USED FOR UNKNOWN INDICATION
     Dosage: UNK
     Route: 065
  6. SUMATRIPTAN. [Concomitant]
     Active Substance: SUMATRIPTAN
     Indication: PRODUCT USED FOR UNKNOWN INDICATION
     Dosage: UNK
     Route: 065
  7. CITALOPRAM [Suspect]
     Active Substance: CITALOPRAM HYDROBROMIDE
     Indication: DEPRESSION
     Dosage: 15 MILLIGRAM, ONCE A DAY
     Route: 048

REACTIONS (7)
  - Hyperhidrosis [Recovered/Resolved]
  - Pyrexia [Recovered/Resolved]
  - Tachycardia [Recovered/Resolved]
  - Musculoskeletal stiffness [Recovered/Resolved]
  - Serotonin syndrome [Recovered/Resolved]
  - Agitation [Recovered/Resolved]
  - Clonus [Recovered/Resolved]
